FAERS Safety Report 23202149 (Version 4)
Quarter: 2025Q3

REPORT INFORMATION
  Report Type: Spontaneous
  Country: CA (occurrence: CA)
  Receive Date: 20231120
  Receipt Date: 20250901
  Transmission Date: 20251021
  Serious: Yes (Other)
  Sender: SANDOZ
  Company Number: CA-002147023-NVSC2023CA087563

PATIENT
  Age: 82 Year
  Sex: Female
  Weight: 83.4 kg

DRUGS (56)
  1. ATORVASTATIN [Suspect]
     Active Substance: ATORVASTATIN
     Indication: Product used for unknown indication
     Dosage: 40 MG, QD
     Route: 065
  2. ATORVASTATIN [Suspect]
     Active Substance: ATORVASTATIN
     Dosage: 40 MG, QD
     Route: 065
  3. ATENOLOL [Suspect]
     Active Substance: ATENOLOL
     Indication: Product used for unknown indication
     Route: 065
  4. CITALOPRAM [Suspect]
     Active Substance: CITALOPRAM
     Indication: Product used for unknown indication
     Dosage: 20 MG, QD
     Route: 065
  5. CITALOPRAM [Suspect]
     Active Substance: CITALOPRAM
     Dosage: UNK
     Route: 065
  6. DICLOFENAC [Suspect]
     Active Substance: DICLOFENAC
     Indication: Pain
     Route: 065
  7. LANSOPRAZOLE [Suspect]
     Active Substance: LANSOPRAZOLE
     Indication: Product used for unknown indication
     Dosage: 30 MG, QD
     Route: 065
  8. METFORMIN [Suspect]
     Active Substance: METFORMIN HYDROCHLORIDE
     Indication: Product used for unknown indication
     Route: 065
  9. RANITIDINE [Suspect]
     Active Substance: RANITIDINE
     Indication: Product used for unknown indication
     Dosage: 150 MG, BID
     Route: 065
  10. RANITIDINE [Suspect]
     Active Substance: RANITIDINE
     Route: 065
  11. VOLTAREN [Suspect]
     Active Substance: DICLOFENAC SODIUM
     Indication: Pain
     Route: 065
  12. ACETAMINOPHEN [Concomitant]
     Active Substance: ACETAMINOPHEN
     Indication: Product used for unknown indication
     Route: 065
  13. ASPIRIN [Concomitant]
     Active Substance: ASPIRIN
     Indication: Product used for unknown indication
     Route: 065
  14. ASPIRIN\CAFFEINE\CODEINE [Concomitant]
     Active Substance: ASPIRIN\CAFFEINE\CODEINE
     Indication: Product used for unknown indication
     Route: 065
  15. Alginic acid;Aluminium hydroxide;Magnesium trisilicate;Sodium;Sodium b [Concomitant]
     Indication: Product used for unknown indication
     Route: 065
  16. ATENOLOL [Concomitant]
     Active Substance: ATENOLOL
     Indication: Product used for unknown indication
     Route: 065
  17. ATORVASTATIN [Concomitant]
     Active Substance: ATORVASTATIN
     Indication: Product used for unknown indication
     Dosage: 40 MG, QD
     Route: 065
  18. FLUTICASONE FUROATE [Concomitant]
     Active Substance: FLUTICASONE FUROATE
     Indication: Product used for unknown indication
     Route: 065
  19. ASPIRIN [Concomitant]
     Active Substance: ASPIRIN
     Indication: Product used for unknown indication
     Route: 065
  20. BETAMETHASONE DIPROPIONATE\CALCIPOTRIENE [Concomitant]
     Active Substance: BETAMETHASONE DIPROPIONATE\CALCIPOTRIENE
     Indication: Product used for unknown indication
     Route: 065
  21. CALCIUM [Concomitant]
     Active Substance: CALCIUM
     Indication: Product used for unknown indication
     Route: 065
  22. CALCIUM CARBONATE [Concomitant]
     Active Substance: CALCIUM CARBONATE
     Indication: Product used for unknown indication
     Route: 065
  23. MINERALS\VITAMINS [Concomitant]
     Active Substance: MINERALS\VITAMINS
     Indication: Product used for unknown indication
     Route: 065
  24. CALTRATE [Concomitant]
     Active Substance: CALCIUM CARBONATE
     Indication: Product used for unknown indication
     Route: 065
  25. CELEBREX [Concomitant]
     Active Substance: CELECOXIB
     Indication: Product used for unknown indication
     Dosage: UNK, QD
     Route: 065
  26. CITALOPRAM [Concomitant]
     Active Substance: CITALOPRAM
     Indication: Product used for unknown indication
     Dosage: 20 MG, QD (40 MG)
     Route: 065
  27. COLACE [Concomitant]
     Active Substance: DOCUSATE SODIUM
     Indication: Product used for unknown indication
     Dosage: UNK, BID
     Route: 065
  28. CALCIUM CARBONATE\ETIDRONATE DISODIUM [Concomitant]
     Active Substance: CALCIUM CARBONATE\ETIDRONATE DISODIUM
     Indication: Product used for unknown indication
     Route: 065
  29. BETAMETHASONE DIPROPIONATE\CALCIPOTRIENE MONOHYDRATE [Concomitant]
     Active Substance: BETAMETHASONE DIPROPIONATE\CALCIPOTRIENE MONOHYDRATE
     Indication: Product used for unknown indication
     Route: 065
  30. ERGOCALCIFEROL [Concomitant]
     Active Substance: ERGOCALCIFEROL
     Indication: Product used for unknown indication
     Route: 065
  31. FUROSEMIDE [Concomitant]
     Active Substance: FUROSEMIDE
     Indication: Product used for unknown indication
     Route: 065
  32. GABAPENTIN [Concomitant]
     Active Substance: GABAPENTIN
     Indication: Product used for unknown indication
     Route: 065
  33. GAVISCON [Concomitant]
     Active Substance: ALUMINUM HYDROXIDE\MAGNESIUM CARBONATE
     Indication: Product used for unknown indication
     Route: 065
  34. Ginsana [Concomitant]
     Indication: Product used for unknown indication
     Route: 065
  35. ASIAN GINSENG [Concomitant]
     Active Substance: ASIAN GINSENG
     Indication: Product used for unknown indication
     Route: 065
  36. HYDROXYCHLOROQUINE [Concomitant]
     Active Substance: HYDROXYCHLOROQUINE
     Indication: Product used for unknown indication
     Route: 065
  37. IRON [Concomitant]
     Active Substance: IRON
     Indication: Product used for unknown indication
     Route: 065
  38. LASIX [Concomitant]
     Active Substance: FUROSEMIDE
     Indication: Product used for unknown indication
     Dosage: UNK, QD
     Route: 065
  39. Lenoltec with codeine no 2 [Concomitant]
     Indication: Product used for unknown indication
     Route: 065
  40. LIPITOR [Concomitant]
     Active Substance: ATORVASTATIN CALCIUM
     Indication: Product used for unknown indication
     Route: 065
  41. LORATADINE [Concomitant]
     Active Substance: LORATADINE
     Indication: Product used for unknown indication
     Route: 065
  42. LUTEIN [Concomitant]
     Active Substance: LUTEIN
     Indication: Product used for unknown indication
     Route: 065
  43. MAGNESIUM [Concomitant]
     Active Substance: MAGNESIUM
     Indication: Product used for unknown indication
     Route: 065
  44. METHOTREXATE [Concomitant]
     Active Substance: METHOTREXATE
     Route: 065
     Dates: start: 2005
  45. METHOTREXATE [Concomitant]
     Active Substance: METHOTREXATE
     Indication: Product used for unknown indication
     Route: 065
  46. Metoprolol l [Concomitant]
     Indication: Product used for unknown indication
     Route: 065
  47. MYOCHRYSINE [Concomitant]
     Active Substance: GOLD SODIUM THIOMALATE
     Indication: Product used for unknown indication
     Route: 030
  48. OMEGA 3 [Concomitant]
     Active Substance: CAPSAICIN
     Indication: Product used for unknown indication
     Route: 065
  49. PANTOPRAZOLE [Concomitant]
     Active Substance: PANTOPRAZOLE
     Indication: Product used for unknown indication
     Dosage: 40 MG, QD
     Route: 065
  50. TEMAZEPAM [Concomitant]
     Active Substance: TEMAZEPAM
     Indication: Product used for unknown indication
     Route: 065
  51. TOVIAZ [Concomitant]
     Active Substance: FESOTERODINE FUMARATE
     Indication: Product used for unknown indication
     Route: 065
  52. TYLENOL [Concomitant]
     Active Substance: ACETAMINOPHEN
     Indication: Pain
     Route: 065
  53. VITAMIN D NOS [Concomitant]
     Active Substance: CHOLECALCIFEROL\ERGOCALCIFEROL
     Indication: Product used for unknown indication
     Route: 065
  54. VITAMIN E [Concomitant]
     Active Substance: .ALPHA.-TOCOPHEROL
     Indication: Product used for unknown indication
     Route: 065
  55. XANTOFYL PALMITATE [Concomitant]
     Active Substance: XANTOFYL PALMITATE
     Indication: Product used for unknown indication
     Route: 065
  56. ZINC [Concomitant]
     Active Substance: ZINC
     Indication: Product used for unknown indication
     Route: 065

REACTIONS (41)
  - Arthralgia [Unknown]
  - Arthritis [Unknown]
  - Arthropathy [Unknown]
  - Asthenia [Unknown]
  - Back pain [Unknown]
  - Body height decreased [Unknown]
  - Bone density decreased [Unknown]
  - Carbuncle [Unknown]
  - Chest pain [Unknown]
  - Cholelithiasis [Unknown]
  - Diabetes mellitus [Unknown]
  - Dyslipidaemia [Unknown]
  - Dysstasia [Unknown]
  - Fall [Unknown]
  - Fibrosis [Unknown]
  - Finger deformity [Unknown]
  - Gait disturbance [Unknown]
  - Hepatic enzyme increased [Unknown]
  - Hepatic steatosis [Unknown]
  - Hypertension [Unknown]
  - Hypothalamo-pituitary disorder [Unknown]
  - Joint range of motion decreased [Unknown]
  - Joint stiffness [Unknown]
  - Limb injury [Unknown]
  - Liver disorder [Unknown]
  - Monoclonal immunoglobulin present [Unknown]
  - Movement disorder [Unknown]
  - Musculoskeletal pain [Unknown]
  - Musculoskeletal stiffness [Unknown]
  - Nephropathy [Unknown]
  - Osteoarthritis [Unknown]
  - Osteoporosis [Unknown]
  - Overweight [Unknown]
  - Psoriasis [Unknown]
  - Psoriatic arthropathy [Unknown]
  - Purpura [Unknown]
  - Renal cyst [Unknown]
  - Renal failure [Unknown]
  - Sciatica [Unknown]
  - Skin disorder [Unknown]
  - Synovitis [Unknown]

NARRATIVE: CASE EVENT DATE: 20180101
